FAERS Safety Report 8394664-8 (Version None)
Quarter: 2012Q2

REPORT INFORMATION
  Report Type: 
  Country: None (occurrence: None)
  Receive Date: 20120530
  Receipt Date: 20120525
  Transmission Date: 20120825
  Serious: Yes (Death)
  Sender: FDA-Public Use
  Company Number: US-PFIZER INC-2012124867

PATIENT
  Sex: Male

DRUGS (1)
  1. SUTENT [Suspect]
     Indication: RENAL CELL CARCINOMA
     Dosage: 50 MG DAILY, 4WEEKS ON AND 2 WEEKS

REACTIONS (3)
  - RESPIRATORY DISTRESS [None]
  - RENAL CELL CARCINOMA [None]
  - DISEASE PROGRESSION [None]
